FAERS Safety Report 9742795 (Version 2)
Quarter: 2014Q1

REPORT INFORMATION
  Report Type: Report from Study
  Country: CA (occurrence: CA)
  Receive Date: 20131210
  Receipt Date: 20140121
  Transmission Date: 20141002
  Serious: Yes (Other)
  Sender: FDA-Public Use
  Company Number: CA-JNJFOC-20131203218

PATIENT
  Sex: Male
  Weight: 79.4 kg

DRUGS (2)
  1. REMICADE [Suspect]
     Indication: CROHN^S DISEASE
     Dosage: 21ST INFUSION
     Route: 042
  2. CLINDAMYCIN [Suspect]
     Indication: PRODUCT USED FOR UNKNOWN INDICATION
     Route: 048
     Dates: start: 20131113

REACTIONS (3)
  - Cellulitis [Recovered/Resolved]
  - Abdominal pain upper [Unknown]
  - Body temperature decreased [Unknown]
